FAERS Safety Report 7051577-1 (Version None)
Quarter: 2010Q4

REPORT INFORMATION
  Report Type: 
  Country: None (occurrence: None)
  Receive Date: 20101018
  Receipt Date: 20101018
  Transmission Date: 20110411
  Serious: Yes (Other)
  Sender: FDA-Public Use
  Company Number: None

PATIENT
  Age: 78 Year
  Sex: Female
  Weight: 63.2 kg

DRUGS (1)
  1. CLINDAMYCIN [Suspect]
     Indication: POST PROCEDURAL INFECTION
     Dosage: 150 MG EACH 2 CAPSULES 4 TIMES PER DAY
     Dates: start: 20100907, end: 20100929

REACTIONS (4)
  - ABDOMINAL DISCOMFORT [None]
  - CHEST DISCOMFORT [None]
  - GASTROINTESTINAL PAIN [None]
  - PAIN [None]
